FAERS Safety Report 14155741 (Version 1)
Quarter: 2017Q4

REPORT INFORMATION
  Report Type: Report from Study
  Country: US (occurrence: US)
  Receive Date: 20171103
  Receipt Date: 20171103
  Transmission Date: 20180321
  Serious: Yes (Other)
  Sender: FDA-Public Use
  Company Number: US-ROCHE-2018029

PATIENT
  Sex: Female

DRUGS (1)
  1. MYCOPHENOLATE MOFETIL. [Suspect]
     Active Substance: MYCOPHENOLATE MOFETIL
     Indication: SCLERODERMA
     Dosage: 200MG/ML ORAL SUSPENSION. 5ML TWO TIMES A DAY
     Route: 048

REACTIONS (3)
  - Gastrooesophageal reflux disease [Unknown]
  - Intentional product use issue [Unknown]
  - Off label use [Unknown]
